FAERS Safety Report 7275494-7 (Version None)
Quarter: 2011Q1

REPORT INFORMATION
  Report Type: 
  Country: None (occurrence: None)
  Receive Date: 20110204
  Receipt Date: 20110124
  Transmission Date: 20110831
  Serious: Yes (Other)
  Sender: FDA-Public Use
  Company Number: US-GENENTECH-313040

PATIENT
  Age: 4 Year
  Sex: Female

DRUGS (1)
  1. RITUXIMAB [Suspect]
     Indication: AUTOIMMUNE PANCYTOPENIA
     Dosage: UNK
     Route: 065

REACTIONS (1)
  - HYPOGAMMAGLOBULINAEMIA [None]
